FAERS Safety Report 6836304-2 (Version None)
Quarter: 2010Q3

REPORT INFORMATION
  Report Type: 
  Country: None (occurrence: None)
  Receive Date: 20100713
  Receipt Date: 20100706
  Transmission Date: 20110219
  Serious: Yes (Hospitalization)
  Sender: FDA-Public Use
  Company Number: FR-PFIZER INC-2010080849

PATIENT
  Age: 45 Year
  Sex: Female
  Weight: 95 kg

DRUGS (5)
  1. PEGVISOMANT [Suspect]
     Indication: ACROMEGALY
     Dosage: 10 MG, UNK
     Dates: start: 20060111
  2. PERINDOPRIL ERBUMINE/INDAPAMIDE HEMIHYDRATE [Concomitant]
     Dosage: UNK
     Dates: start: 20080107
  3. LEVOTHYROXINE [Concomitant]
     Dosage: UNK
     Dates: start: 20080107
  4. HYDROCORTISONE [Concomitant]
     Dosage: UNK
     Dates: start: 20080107
  5. TESTOSTERONE UNDECANOATE [Concomitant]
     Dosage: UNK
     Dates: start: 20080107

REACTIONS (1)
  - PITUITARY TUMOUR RECURRENT [None]
